FAERS Safety Report 5426446-0 (Version None)
Quarter: 2007Q3

REPORT INFORMATION
  Report Type: 
  Country: None (occurrence: None)
  Receive Date: 20070731
  Receipt Date: 20070419
  Transmission Date: 20080115
  Serious: No
  Sender: FDA-Public Use
  Company Number: US200704004559

PATIENT
  Age: 55 Year
  Sex: Female
  Weight: 66.7 kg

DRUGS (7)
  1. BYETTA [Suspect]
     Indication: TYPE 2 DIABETES MELLITUS
     Dosage: 5 UG, 2/D, SUBCUTANEOUS; 10 UG, 2/D, SUBCUTANEOUS; 5 UG, EACH EVENING, SUBCUTANEOUS; 10 UG, EACH MOR
     Route: 058
     Dates: start: 20050101, end: 20050101
  2. BYETTA [Suspect]
     Indication: TYPE 2 DIABETES MELLITUS
     Dosage: 5 UG, 2/D, SUBCUTANEOUS; 10 UG, 2/D, SUBCUTANEOUS; 5 UG, EACH EVENING, SUBCUTANEOUS; 10 UG, EACH MOR
     Route: 058
     Dates: start: 20050101, end: 20070419
  3. BYETTA [Suspect]
     Indication: TYPE 2 DIABETES MELLITUS
     Dosage: 5 UG, 2/D, SUBCUTANEOUS; 10 UG, 2/D, SUBCUTANEOUS; 5 UG, EACH EVENING, SUBCUTANEOUS; 10 UG, EACH MOR
     Route: 058
     Dates: start: 20070419
  4. BYETTA [Suspect]
     Indication: TYPE 2 DIABETES MELLITUS
     Dosage: 5 UG, 2/D, SUBCUTANEOUS; 10 UG, 2/D, SUBCUTANEOUS; 5 UG, EACH EVENING, SUBCUTANEOUS; 10 UG, EACH MOR
     Route: 058
     Dates: start: 20070419
  5. EXENATIDE (EXENATIDE PEN) [Concomitant]
  6. METFORMIN HCL [Concomitant]
  7. HUMALIN (INSULIN) [Concomitant]

REACTIONS (3)
  - BLOOD GLUCOSE DECREASED [None]
  - BLOOD GLUCOSE INCREASED [None]
  - WEIGHT DECREASED [None]
